FAERS Safety Report 4366032-7 (Version None)
Quarter: 2004Q2

REPORT INFORMATION
  Report Type: 
  Country: None (occurrence: None)
  Receive Date: 20040524
  Receipt Date: 20040507
  Transmission Date: 20050107
  Serious: Yes (Hospitalization)
  Sender: FDA-Public Use
  Company Number: 2004AP02573

PATIENT
  Age: 38 Year
  Sex: Female

DRUGS (3)
  1. NEXIUM [Suspect]
     Indication: OESOPHAGEAL DISORDER
     Dosage: 40 MG DAILY PO
     Route: 048
     Dates: start: 20030919, end: 20030923
  2. NEXIUM [Suspect]
     Indication: OESOPHAGEAL DISORDER
     Dosage: 40 MG DAILY PO
     Route: 048
     Dates: start: 20030925
  3. LOETTE [Concomitant]

REACTIONS (2)
  - NECK PAIN [None]
  - PARAESTHESIA [None]
